FAERS Safety Report 21984494 (Version 1)
Quarter: 2023Q1

REPORT INFORMATION
  Report Type: Spontaneous
  Country: US (occurrence: None)
  Receive Date: 20230210
  Receipt Date: 20230210
  Transmission Date: 20230417
  Serious: No
  Sender: FDA-Public Use
  Company Number: None

PATIENT
  Age: 68 Year
  Sex: Female
  Weight: 114.75 kg

DRUGS (23)
  1. HIZENTRA [Suspect]
     Active Substance: HUMAN IMMUNOGLOBULIN G
     Indication: Myasthenia gravis
     Dosage: OTHER FREQUENCY : WEEKLY;?
     Route: 058
     Dates: start: 20211015
  2. HIZENTRA [Suspect]
     Active Substance: HUMAN IMMUNOGLOBULIN G
     Indication: Myasthenia gravis
     Dosage: OTHER FREQUENCY : WEEKLY;?
     Route: 058
     Dates: start: 20211015
  3. PROLIA [Concomitant]
     Active Substance: DENOSUMAB
     Dates: start: 20221006
  4. IBUPROFEN [Concomitant]
     Active Substance: IBUPROFEN
  5. VITAMIN B12 [Concomitant]
     Active Substance: CYANOCOBALAMIN
     Dates: start: 20221006
  6. IMURAN [Concomitant]
     Active Substance: AZATHIOPRINE
     Dates: start: 20221006
  7. BUSPIRONE [Concomitant]
     Active Substance: BUSPIRONE HYDROCHLORIDE
     Dates: start: 20221006
  8. PREDNISONE [Concomitant]
     Active Substance: PREDNISONE
     Dates: start: 20221006
  9. ALLEGRA [Concomitant]
     Active Substance: FEXOFENADINE HYDROCHLORIDE
     Dates: start: 20221006
  10. CALCIUM [Concomitant]
     Active Substance: CALCIUM
     Dates: start: 20211025
  11. VITAMINS [Concomitant]
     Active Substance: VITAMINS
     Dates: start: 20211025
  12. METFORMIN [Concomitant]
     Active Substance: METFORMIN HYDROCHLORIDE
     Dates: start: 20211025
  13. LOSARTAN [Concomitant]
     Active Substance: LOSARTAN
     Dates: start: 20211025
  14. SYNTHROID [Concomitant]
     Active Substance: LEVOTHYROXINE SODIUM
     Dates: start: 20211025
  15. FAMOTIDINE [Concomitant]
     Active Substance: FAMOTIDINE
     Dates: start: 20211025
  16. DONEPEZIL [Concomitant]
     Active Substance: DONEPEZIL
     Dates: start: 20211025
  17. CYMBALTA [Concomitant]
     Active Substance: DULOXETINE HYDROCHLORIDE
     Dates: start: 20211025
  18. CLONAZEPAM [Concomitant]
     Active Substance: CLONAZEPAM
     Dates: start: 20211025
  19. CARVEDILOL [Concomitant]
     Active Substance: CARVEDILOL
     Dates: start: 20211025
  20. ATORVASTATIN [Concomitant]
     Active Substance: ATORVASTATIN
     Dates: start: 20211025
  21. MESTINON [Concomitant]
     Active Substance: PYRIDOSTIGMINE BROMIDE
     Dates: start: 20211025
  22. ipratropium nasal [Concomitant]
     Dates: start: 20211025
  23. SYMBICORT [Concomitant]
     Active Substance: BUDESONIDE\FORMOTEROL FUMARATE DIHYDRATE
     Dates: start: 20211025

REACTIONS (5)
  - Rash [None]
  - Rash pruritic [None]
  - Injection site rash [None]
  - Infusion related reaction [None]
  - Dyspnoea [None]

NARRATIVE: CASE EVENT DATE: 20230202
